FAERS Safety Report 7590338-1 (Version None)
Quarter: 2011Q3

REPORT INFORMATION
  Report Type: 
  Country: None (occurrence: None)
  Receive Date: 20110705
  Receipt Date: 20110621
  Transmission Date: 20111222
  Serious: No
  Sender: FDA-Public Use
  Company Number: US-ROXANE LABORATORIES, INC.-2011-RO-00874RO

PATIENT
  Age: 65 Year
  Sex: Male

DRUGS (1)
  1. CALCIUM ACETATE [Suspect]
     Indication: RENAL FAILURE
     Dosage: 2001 MG
     Route: 048
     Dates: start: 20110607

REACTIONS (2)
  - CAPSULE PHYSICAL ISSUE [None]
  - FOREIGN BODY ASPIRATION [None]
